FAERS Safety Report 8996317 (Version 1)
Quarter: 2013Q1

REPORT INFORMATION
  Report Type: Spontaneous
  Country: US (occurrence: US)
  Receive Date: 20130103
  Receipt Date: 20130103
  Transmission Date: 20140127
  Serious: Yes (Death)
  Sender: FDA-Public Use
  Company Number: US-MYLANLABS-2012S1026331

PATIENT
  Age: 52 Year
  Sex: Female

DRUGS (8)
  1. TEMAZEPAM CAPSULES [Suspect]
     Indication: INSOMNIA
     Route: 048
     Dates: start: 20121203
  2. DOXEPIN HYDROCHLORIDE [Suspect]
     Indication: INSOMNIA
     Route: 048
     Dates: start: 2011
  3. ATENOLOL TABLETS, USP [Suspect]
     Route: 048
  4. FEMHRT [Concomitant]
     Route: 048
  5. BACLOFEN [Concomitant]
     Route: 048
  6. TRIAZOLAM [Concomitant]
     Route: 048
  7. OXYCODONE HCL [Concomitant]
     Route: 048
  8. HYDROCODONE [Concomitant]
     Dosage: ONE TABLET EVERY 4 TO 6 HOURS
     Route: 048

REACTIONS (4)
  - Completed suicide [Fatal]
  - Drug ineffective [Unknown]
  - Insomnia [Unknown]
  - Abdominal discomfort [Unknown]
